FAERS Safety Report 21842250 (Version 4)
Quarter: 2025Q3

REPORT INFORMATION
  Report Type: Report from Study
  Country: PE (occurrence: PE)
  Receive Date: 20230110
  Receipt Date: 20250723
  Transmission Date: 20251020
  Serious: Yes (Hospitalization, Disabling, Other)
  Sender: NOVARTIS
  Company Number: PE-002147023-NVSC2022PE232597

PATIENT
  Age: 37 Year
  Sex: Female
  Weight: 69 kg

DRUGS (12)
  1. COSENTYX [Suspect]
     Active Substance: SECUKINUMAB
     Indication: Ankylosing spondylitis
     Dosage: 150 MG, QMO
     Route: 058
     Dates: start: 202205
  2. COSENTYX [Suspect]
     Active Substance: SECUKINUMAB
     Indication: Axial spondyloarthritis
     Dosage: 300 MG, QMO
     Route: 058
     Dates: start: 202210
  3. COSENTYX [Suspect]
     Active Substance: SECUKINUMAB
     Dosage: 2 DOSAGE FORM, QMO
     Route: 065
     Dates: start: 20221203
  4. COSENTYX [Suspect]
     Active Substance: SECUKINUMAB
     Dosage: 2 DOSAGE FORM, QMO
     Route: 065
     Dates: start: 20221230
  5. COSENTYX [Suspect]
     Active Substance: SECUKINUMAB
     Dosage: 300 MG, QMO, (2 UNITS), AMPOULE
     Route: 058
     Dates: start: 20220501
  6. GABAPENTIN [Concomitant]
     Active Substance: GABAPENTIN
     Indication: Product used for unknown indication
     Route: 065
  7. ESCITALOPRAM [Concomitant]
     Active Substance: ESCITALOPRAM OXALATE
     Indication: Product used for unknown indication
     Route: 065
  8. LURASIDONE [Concomitant]
     Active Substance: LURASIDONE
     Indication: Product used for unknown indication
     Route: 065
  9. ZOLPIDEM [Concomitant]
     Active Substance: ZOLPIDEM TARTRATE
     Indication: Product used for unknown indication
     Route: 065
  10. CELECOXIB [Concomitant]
     Active Substance: CELECOXIB
     Indication: Product used for unknown indication
     Route: 065
  11. Orfenadrina [Concomitant]
     Indication: Product used for unknown indication
     Route: 065
  12. PREGABALIN [Concomitant]
     Active Substance: PREGABALIN
     Indication: Fibromyalgia
     Dosage: (150) (EVERY 8  HOURS)
     Route: 065

REACTIONS (17)
  - Spondylitis [Unknown]
  - Injection site pain [Recovering/Resolving]
  - Injection site bruising [Recovering/Resolving]
  - Injection site warmth [Recovering/Resolving]
  - Ankylosing spondylitis [Recovering/Resolving]
  - Pain in extremity [Not Recovered/Not Resolved]
  - Musculoskeletal pain [Not Recovered/Not Resolved]
  - Dry mouth [Not Recovered/Not Resolved]
  - Neck pain [Not Recovered/Not Resolved]
  - Back pain [Not Recovered/Not Resolved]
  - Chondropathy [Recovering/Resolving]
  - Sacral pain [Not Recovered/Not Resolved]
  - Malaise [Unknown]
  - Incorrect dose administered [Unknown]
  - Product distribution issue [Unknown]
  - Injection site cyst [Unknown]
  - Therapeutic response shortened [Unknown]

NARRATIVE: CASE EVENT DATE: 20220901
